FAERS Safety Report 9160360 (Version 5)
Quarter: 2014Q3

REPORT INFORMATION
  Report Type: Spontaneous
  Country: US (occurrence: US)
  Receive Date: 20130313
  Receipt Date: 20140904
  Transmission Date: 20150326
  Serious: Yes (Life-Threatening, Hospitalization)
  Sender: FDA-Public Use
  Company Number: US-BAYER-2013-028971

PATIENT
  Age: 17 Year
  Sex: Female
  Weight: 91.16 kg

DRUGS (17)
  1. YAZ [Suspect]
     Active Substance: DROSPIRENONE\ETHINYL ESTRADIOL
     Indication: ACNE
     Dosage: UNK
     Dates: start: 201001, end: 20110101
  2. HYDROCHLOROTHIAZIDE. [Concomitant]
     Active Substance: HYDROCHLOROTHIAZIDE
  3. NEXIUM [Concomitant]
     Active Substance: ESOMEPRAZOLE MAGNESIUM
     Indication: GASTROOESOPHAGEAL REFLUX DISEASE
  4. GIANVI [Suspect]
     Active Substance: DROSPIRENONE\ETHINYL ESTRADIOL
     Dosage: UNK
     Dates: start: 201001, end: 20110101
  5. PRILOSEC [Concomitant]
     Active Substance: OMEPRAZOLE MAGNESIUM
  6. AZITHROMYCIN [Concomitant]
     Active Substance: AZITHROMYCIN ANHYDROUS
     Dosage: 250 MG, UNK
  7. PROMETHAZINE [Concomitant]
     Active Substance: PROMETHAZINE\PROMETHAZINE HYDROCHLORIDE
     Dosage: 25 MG, UNK
  8. MIDRIN [Concomitant]
     Active Substance: ACETAMINOPHEN\DICHLORALPHENAZONE\ISOMETHEPTENE
     Dosage: UNK
     Route: 048
     Dates: start: 20101108
  9. SAFYRAL [Suspect]
     Active Substance: DROSPIRENONE\ETHINYL ESTRADIOL\LEVOMEFOLATE CALCIUM
     Dosage: UNK
     Dates: start: 201001, end: 20110101
  10. AFRIN [OXYMETAZOLINE] [Concomitant]
     Dosage: UNK
     Route: 045
     Dates: start: 20110105
  11. BEYAZ [Suspect]
     Active Substance: DROSPIRENONE\ETHINYL ESTRADIOL\LEVOMEFOLATE CALCIUM
     Dosage: UNK
     Dates: start: 201001, end: 20110101
  12. LISINOPRIL. [Concomitant]
     Active Substance: LISINOPRIL
     Indication: HYPERTENSION
  13. AMOXICILLIN. [Concomitant]
     Active Substance: AMOXICILLIN
  14. BUTALBITAL, ACETAMINOPHEN, CAFFEINE [Concomitant]
     Active Substance: ACETAMINOPHEN\BUTALBITAL\CAFFEINE
     Dosage: UNK
     Dates: start: 20101108
  15. LORTAB [Concomitant]
     Active Substance: ACETAMINOPHEN\HYDROCODONE BITARTRATE
  16. PHENADOZ [Concomitant]
     Active Substance: PROMETHAZINE HYDROCHLORIDE
     Dosage: 25 MG, UNK
  17. YAZ [Suspect]
     Active Substance: DROSPIRENONE\ETHINYL ESTRADIOL
     Indication: CONTRACEPTION

REACTIONS (11)
  - Anxiety [None]
  - Pulmonary embolism [Recovered/Resolved]
  - Anhedonia [None]
  - Emotional distress [None]
  - Injury [Recovered/Resolved]
  - General physical health deterioration [Recovered/Resolved]
  - Vascular rupture [Recovered/Resolved]
  - Deep vein thrombosis [Recovered/Resolved]
  - Pain [Recovered/Resolved]
  - Pain [None]
  - Gait disturbance [Recovered/Resolved]

NARRATIVE: CASE EVENT DATE: 20110204
